FAERS Safety Report 8810889 (Version 1)
Quarter: 2012Q4

REPORT INFORMATION
  Report Type: Spontaneous
  Country: US (occurrence: None)
  Receive Date: 20120924
  Receipt Date: 20120924
  Transmission Date: 20130627
  Serious: Yes (Other)
  Sender: FDA-Public Use
  Company Number: None

PATIENT
  Age: 43 Year
  Sex: Female
  Weight: 62.6 kg

DRUGS (2)
  1. IC NITROFUR [Suspect]
     Route: 048
     Dates: start: 20120910, end: 20120917
  2. LEVOTHROID [Concomitant]

REACTIONS (4)
  - Rash pruritic [None]
  - Rash [None]
  - Rash [None]
  - Muscular weakness [None]
